FAERS Safety Report 4715066-9 (Version None)
Quarter: 2005Q3

REPORT INFORMATION
  Report Type: 
  Country: None (occurrence: None)
  Receive Date: 20050715
  Receipt Date: 20050705
  Transmission Date: 20060218
  Serious: Yes (Hospitalization, Other)
  Sender: FDA-Public Use
  Company Number: DK-BRISTOL-MYERS SQUIBB COMPANY-13023957

PATIENT
  Age: 35 Year
  Sex: Female
  Weight: 52 kg

DRUGS (2)
  1. DICLOCIL INJ [Suspect]
     Indication: MASTITIS
     Route: 040
     Dates: start: 20050505, end: 20050505
  2. DICLOCIL CAPS 500 MG [Concomitant]
     Indication: MASTITIS
     Route: 048
     Dates: start: 20050501

REACTIONS (2)
  - INJECTION SITE REACTION [None]
  - PHLEBITIS [None]
